FAERS Safety Report 8104710-4 (Version None)
Quarter: 2012Q1

REPORT INFORMATION
  Report Type: 
  Country: None (occurrence: None)
  Receive Date: 20120201
  Receipt Date: 20120127
  Transmission Date: 20120608
  Serious: Yes (Other)
  Sender: FDA-Public Use
  Company Number: US-TEVA-319813USA

PATIENT
  Sex: Male

DRUGS (4)
  1. MOTRIN [Concomitant]
     Route: 048
  2. XANAX [Suspect]
     Route: 048
     Dates: start: 20110101
  3. XANAX [Suspect]
     Route: 048
  4. NUVIGIL [Suspect]
     Indication: NARCOLEPSY
     Route: 048

REACTIONS (9)
  - SKIN DISCOLOURATION [None]
  - EUPHORIC MOOD [None]
  - INTENTIONAL DRUG MISUSE [None]
  - DYSARTHRIA [None]
  - DRUG DEPENDENCE [None]
  - ANGER [None]
  - MENTAL STATUS CHANGES [None]
  - MOOD ALTERED [None]
  - COORDINATION ABNORMAL [None]
